FAERS Safety Report 14461222 (Version 4)
Quarter: 2019Q2

REPORT INFORMATION
  Report Type: Report from Study
  Country: US (occurrence: US)
  Receive Date: 20180130
  Receipt Date: 20190510
  Transmission Date: 20190711
  Serious: Yes (Hospitalization, Other)
  Sender: FDA-Public Use
  Company Number: US-SA-2018SA018596

PATIENT
  Age: 58 Year
  Sex: Male

DRUGS (1)
  1. TERIFLUNOMIDE. [Suspect]
     Active Substance: TERIFLUNOMIDE
     Indication: MULTIPLE SCLEROSIS
     Dosage: 14 MG, QD
     Route: 048
     Dates: start: 201701, end: 201807

REACTIONS (4)
  - Neurosurgery [Unknown]
  - Unevaluable event [Not Recovered/Not Resolved]
  - Bladder disorder [Not Recovered/Not Resolved]
  - Product dose omission [Unknown]
